FAERS Safety Report 12294642 (Version 2)
Quarter: 2016Q3

REPORT INFORMATION
  Report Type: Report from Study
  Country: US (occurrence: US)
  Receive Date: 20160422
  Receipt Date: 20160812
  Transmission Date: 20161109
  Serious: Yes (Other)
  Sender: FDA-Public Use
  Company Number: US-TEVA-653844USA

PATIENT
  Age: 36 Year
  Sex: Male

DRUGS (9)
  1. CLOZAPINE. [Suspect]
     Active Substance: CLOZAPINE
     Route: 048
     Dates: end: 20160323
  2. BENZOTROPINE [Concomitant]
     Active Substance: BENZTROPINE
     Dosage: EVERY HS
  3. FOLIC ACID. [Concomitant]
     Active Substance: FOLIC ACID
  4. OLANZAPINE. [Concomitant]
     Active Substance: OLANZAPINE
     Dosage: EVERY HS
  5. EPOETIN ALFA [Concomitant]
     Active Substance: ERYTHROPOIETIN
     Dosage: 20,000 UNITS
  6. PARICALCITOL. [Concomitant]
     Active Substance: PARICALCITOL
  7. SEVELAMER [Concomitant]
     Active Substance: SEVELAMER
  8. CINACALCET HYDROCHLORIDE [Concomitant]
     Active Substance: CINACALCET HYDROCHLORIDE
  9. IRON SUCROSE [Concomitant]
     Active Substance: IRON SUCROSE

REACTIONS (1)
  - Granulocytopenia [Recovered/Resolved]

NARRATIVE: CASE EVENT DATE: 20160411
